FAERS Safety Report 7400328-7 (Version None)
Quarter: 2011Q2

REPORT INFORMATION
  Report Type: 
  Country: None (occurrence: None)
  Receive Date: 20110405
  Receipt Date: 20110405
  Transmission Date: 20111010
  Serious: No
  Sender: FDA-Public Use
  Company Number: None

PATIENT
  Age: 26 Year
  Sex: Female
  Weight: 71.6683 kg

DRUGS (4)
  1. MIRENA [Suspect]
  2. BUSPIRONE HCL [Suspect]
     Indication: ANXIETY
     Dosage: 10MG 1 BEFORE BED PO
     Route: 048
     Dates: start: 20110401, end: 20110404
  3. BUSPIRONE HCL [Suspect]
     Indication: PANIC ATTACK
     Dosage: 10MG 1 BEFORE BED PO
     Route: 048
     Dates: start: 20110401, end: 20110404
  4. ATIVAN [Concomitant]

REACTIONS (2)
  - ABNORMAL DREAMS [None]
  - HALLUCINATION, AUDITORY [None]
